FAERS Safety Report 9752053 (Version 1)
Quarter: 2013Q4

REPORT INFORMATION
  Report Type: Spontaneous
  Country: NL (occurrence: None)
  Receive Date: 20131211
  Receipt Date: 20131211
  Transmission Date: 20140711
  Serious: Yes (Hospitalization)
  Sender: FDA-Public Use
  Company Number: AUR-APL-2013-10284

PATIENT
  Age: 72 Year
  Sex: Female

DRUGS (9)
  1. PANTOPRAZOLE [Suspect]
     Indication: PROPHYLAXIS AGAINST GASTROINTESTINAL ULCER
     Dosage: 1 IN 1 D
     Route: 048
     Dates: start: 20131104, end: 20131112
  2. METOPROLOL SUCCINATE (METOPROLOL SUCCINATE) [Concomitant]
  3. BUMETANIDE (BUMETANIDE) [Concomitant]
  4. METOCLOPRAMIDE (METOCLOPRAMIDE) [Concomitant]
  5. PERINDOPRIL (PERINDOPRIL) [Concomitant]
  6. TRAMADOL (TRAMADOL) [Concomitant]
  7. NOVOMIX (NOVOMIX) [Concomitant]
  8. ACETYLSALICYLZUUR CARDIO (ACETYSLICYLIC ACID) [Concomitant]
  9. SERETIDE (SERETIDE) [Concomitant]

REACTIONS (1)
  - Hepatitis toxic [None]
